FAERS Safety Report 8831708 (Version 2)
Quarter: 2012Q4

REPORT INFORMATION
  Report Type: 
  Country: BE (occurrence: BE)
  Receive Date: 20121009
  Receipt Date: 20121030
  Transmission Date: 20130627
  Serious: Yes (Other)
  Sender: FDA-Public Use
  Company Number: BE-ABBOTT-12P-013-0990082-00

PATIENT

DRUGS (1)
  1. HUMIRA [Suspect]
     Indication: PSORIASIS
     Dates: start: 2011

REACTIONS (2)
  - Cardiac failure [Unknown]
  - Oedema peripheral [Unknown]
